FAERS Safety Report 14420478 (Version 1)
Quarter: 2018Q1

REPORT INFORMATION
  Report Type: Spontaneous
  Country: US (occurrence: US)
  Receive Date: 20180122
  Receipt Date: 20180122
  Transmission Date: 20180509
  Serious: No
  Sender: FDA-Public Use
  Company Number: US-ROCHE-1960977

PATIENT
  Age: 55 Year
  Sex: Female
  Weight: 88.08 kg

DRUGS (14)
  1. SULFASALAZINE. [Concomitant]
     Active Substance: SULFASALAZINE
     Dosage: 2 TABS
     Route: 048
     Dates: start: 20160815
  2. RAYOS [Concomitant]
     Active Substance: PREDNISONE
     Dosage: QHS
     Route: 048
     Dates: start: 20170301
  3. BENADRYL [Concomitant]
     Active Substance: DIPHENHYDRAMINE HYDROCHLORIDE
     Route: 065
  4. VITAMIN D2 [Concomitant]
     Active Substance: ERGOCALCIFEROL
     Route: 048
     Dates: start: 20170301
  5. LOSARTAN/HCTZ [Concomitant]
     Active Substance: HYDROCHLOROTHIAZIDE\LOSARTAN
     Dosage: 50MG/125 MG
     Route: 048
     Dates: start: 20150709
  6. ZIAC (UNITED STATES) [Concomitant]
     Dosage: 10MG-625
     Route: 048
     Dates: start: 20161114
  7. TYLENOL [Concomitant]
     Active Substance: ACETAMINOPHEN
     Route: 065
  8. RITUXAN [Suspect]
     Active Substance: RITUXIMAB
     Route: 042
     Dates: start: 20170601, end: 20170619
  9. RITUXAN [Suspect]
     Active Substance: RITUXIMAB
     Indication: RHEUMATOID ARTHRITIS
     Route: 042
     Dates: start: 20170518, end: 20170601
  10. SOLU-MEDROL [Concomitant]
     Active Substance: METHYLPREDNISOLONE SODIUM SUCCINATE
     Route: 065
  11. NORCO [Concomitant]
     Active Substance: ACETAMINOPHEN\HYDROCODONE BITARTRATE
     Dosage: Q 4 PRN
     Route: 048
     Dates: start: 20120830
  12. BENADRYL [Concomitant]
     Active Substance: DIPHENHYDRAMINE HYDROCHLORIDE
     Route: 065
     Dates: start: 20170619
  13. ZOFRAN [Concomitant]
     Active Substance: ONDANSETRON HYDROCHLORIDE
     Route: 065
  14. TYLENOL [Concomitant]
     Active Substance: ACETAMINOPHEN
     Route: 065
     Dates: start: 20170619

REACTIONS (3)
  - Heart rate increased [Recovered/Resolved]
  - Chills [Recovered/Resolved]
  - Body temperature increased [Recovered/Resolved]

NARRATIVE: CASE EVENT DATE: 20170611
